FAERS Safety Report 24030445 (Version 1)
Quarter: 2024Q2

REPORT INFORMATION
  Report Type: Spontaneous
  Country: BR (occurrence: BR)
  Receive Date: 20240628
  Receipt Date: 20240628
  Transmission Date: 20240716
  Serious: Yes (Other)
  Sender: FDA-Public Use
  Company Number: BR-DAIICHI SANKYO, INC.-DSE-2024-129085

PATIENT
  Age: 68 Year
  Sex: Female

DRUGS (2)
  1. ENHERTU [Suspect]
     Active Substance: FAM-TRASTUZUMAB DERUXTECAN-NXKI
     Indication: HER2 positive breast cancer
     Dosage: UNK
     Route: 065
     Dates: start: 202309, end: 202404
  2. ONDANSETRON [Concomitant]
     Active Substance: ONDANSETRON
     Indication: Premedication

REACTIONS (3)
  - Ascites [Unknown]
  - Gastrointestinal stoma complication [Unknown]
  - Disease progression [Unknown]

NARRATIVE: CASE EVENT DATE: 20240401
